FAERS Safety Report 6188159-X (Version None)
Quarter: 2009Q2

REPORT INFORMATION
  Report Type: 
  Country: None (occurrence: None)
  Receive Date: 20090513
  Receipt Date: 20081110
  Transmission Date: 20091009
  Serious: No
  Sender: FDA-Public Use
  Company Number: A0755786A

PATIENT
  Sex: Female

DRUGS (5)
  1. DYNACIRC CR [Suspect]
     Indication: HYPERTENSION
     Dosage: 5MCG PER DAY
     Route: 048
     Dates: start: 20081024
  2. LISINOPRIL AND HYDROCHLOROTHIAZIDE [Concomitant]
  3. METOPROLOL [Concomitant]
  4. KEPPRA [Concomitant]
  5. LIPITOR [Concomitant]

REACTIONS (1)
  - OEDEMA PERIPHERAL [None]
